FAERS Safety Report 4600096-8 (Version None)
Quarter: 2005Q1

REPORT INFORMATION
  Report Type: 
  Country: None (occurrence: None)
  Receive Date: 20050303
  Receipt Date: 20050207
  Transmission Date: 20050727
  Serious: Yes (Hospitalization)
  Sender: FDA-Public Use
  Company Number: J200500558

PATIENT
  Age: 77 Year
  Sex: Male

DRUGS (9)
  1. (MYSLEE) ZOLPIDEM TABLET 10 MG [Suspect]
     Indication: INSOMNIA
     Dosage: 10MG/10MG;PO
     Route: 048
     Dates: start: 20041008, end: 20041113
  2. (MYSLEE) ZOLPIDEM TABLET 10 MG [Suspect]
     Indication: INSOMNIA
     Dosage: 10MG/10MG;PO
     Route: 048
     Dates: start: 20050125, end: 20050207
  3. LAC B (BIFIDOBACTERIUM 4) [Concomitant]
  4. PANCREATIN [Concomitant]
  5. SELBEX (TEPRENONE) [Concomitant]
  6. ZYRTEC [Concomitant]
  7. NEUROVITAN (OCTOTIAMINE B2.B6.B12 COMBINED DRUG) [Concomitant]
  8. HALCION [Concomitant]
  9. HALCION [Concomitant]

REACTIONS (23)
  - ALCOHOL USE [None]
  - AMNESIA [None]
  - ANOREXIA [None]
  - ASPARTATE AMINOTRANSFERASE DECREASED [None]
  - BLOOD CHLORIDE DECREASED [None]
  - BLOOD LACTATE DEHYDROGENASE INCREASED [None]
  - BLOOD SODIUM DECREASED [None]
  - DEHYDRATION [None]
  - DELIRIUM [None]
  - DIZZINESS [None]
  - FALL [None]
  - HAEMATOCRIT DECREASED [None]
  - HAEMATURIA [None]
  - HAEMOGLOBIN DECREASED [None]
  - MONOCYTE PERCENTAGE DECREASED [None]
  - NEUTROPHIL PERCENTAGE INCREASED [None]
  - PLATELET COUNT DECREASED [None]
  - PROTEIN URINE PRESENT [None]
  - RED BLOOD CELL COUNT DECREASED [None]
  - RED BLOOD CELL SEDIMENTATION RATE INCREASED [None]
  - SLEEP PHASE RHYTHM DISTURBANCE [None]
  - STRESS [None]
  - WHITE BLOOD CELL COUNT DECREASED [None]
